FAERS Safety Report 16669454 (Version 6)
Quarter: 2019Q4

REPORT INFORMATION
  Report Type: Spontaneous
  Country: JP (occurrence: JP)
  Receive Date: 20190805
  Receipt Date: 20191217
  Transmission Date: 20200122
  Serious: Yes (Other)
  Sender: FDA-Public Use
  Company Number: JP-PFIZER INC-2019270425

PATIENT

DRUGS (2)
  1. LORBRENA [Suspect]
     Active Substance: LORLATINIB
     Dosage: 75 MG, UNK
     Dates: start: 20190704
  2. LORBRENA [Suspect]
     Active Substance: LORLATINIB
     Dosage: UNK
     Dates: start: 20190613, end: 20190627

REACTIONS (11)
  - Oedema peripheral [Recovering/Resolving]
  - Intracranial aneurysm [Unknown]
  - Neoplasm progression [Unknown]
  - Depressive symptom [Recovering/Resolving]
  - Somnolence [Unknown]
  - Radiation pneumonitis [Unknown]
  - Hallucination [Recovered/Resolved]
  - Hallucination, auditory [Recovered/Resolved]
  - Pain in extremity [Unknown]
  - Hyperlipidaemia [Recovered/Resolved]
  - Irritability [Unknown]
